FAERS Safety Report 19514251 (Version 2)
Quarter: 2022Q1

REPORT INFORMATION
  Report Type: Spontaneous
  Country: US (occurrence: US)
  Receive Date: 20210709
  Receipt Date: 20220308
  Transmission Date: 20220424
  Serious: Yes (Other)
  Sender: FDA-Public Use
  Company Number: US-JNJFOC-20210707593

PATIENT
  Age: 43 Year
  Sex: Female

DRUGS (8)
  1. ELMIRON [Suspect]
     Active Substance: PENTOSAN POLYSULFATE SODIUM
     Indication: Cystitis interstitial
     Route: 048
     Dates: start: 20100715, end: 20200707
  2. ELMIRON [Suspect]
     Active Substance: PENTOSAN POLYSULFATE SODIUM
     Route: 048
     Dates: end: 20200825
  3. FLAVOXATE [Concomitant]
     Active Substance: FLAVOXATE
     Indication: Urinary tract disorder
     Dates: start: 20110411, end: 20201204
  4. ROPINIROLE [Concomitant]
     Active Substance: ROPINIROLE
     Indication: Muscle disorder
     Dates: start: 20140820
  5. SOLIFENACIN [Concomitant]
     Active Substance: SOLIFENACIN
     Indication: Urinary tract disorder
     Dates: start: 20200421, end: 20210403
  6. HYDROXYZINE [Concomitant]
     Active Substance: HYDROXYZINE HYDROCHLORIDE
     Indication: Urinary tract disorder
     Dates: start: 20200409, end: 20210902
  7. UROGESIC BLUE [Concomitant]
     Active Substance: HYOSCYAMINE SULFATE\METHENAMINE\METHYLENE BLUE\PHENYL SALICYLATE\SODIUM PHOSPHATE, MONOBASIC, MONOHY
     Indication: Urinary tract disorder
     Dates: start: 20130628, end: 20210205
  8. URO-MP [Concomitant]
     Active Substance: HYOSCYAMINE SULFATE\METHENAMINE\METHYLENE BLUE\PHENYL SALICYLATE\SODIUM PHOSPHATE, MONOBASIC, MONOHY
     Indication: Urinary tract disorder
     Dates: start: 20200421, end: 20210721

REACTIONS (1)
  - Maculopathy [Not Recovered/Not Resolved]

NARRATIVE: CASE EVENT DATE: 20200701
